FAERS Safety Report 5333446-8 (Version None)
Quarter: 2007Q2

REPORT INFORMATION
  Report Type: 
  Country: None (occurrence: None)
  Receive Date: 20070521
  Receipt Date: 20070509
  Transmission Date: 20071010
  Serious: Yes (Hospitalization)
  Sender: FDA-Public Use
  Company Number: 233567K07USA

PATIENT
  Age: 51 Year
  Sex: Female
  Weight: 78.9259 kg

DRUGS (9)
  1. REBIF [Suspect]
     Indication: MULTIPLE SCLEROSIS
     Dosage: 44 MCG, 3 IN 1 WEEKS, SUBCUTANEOUS
     Route: 058
     Dates: start: 20040112
  2. BENICAR [Concomitant]
  3. PRAVASTATIN [Concomitant]
  4. METFORMIN [Concomitant]
  5. FLONASE [Concomitant]
  6. INHALERS (ALL OTHER THERAPEUTIC PRODUCTS) [Concomitant]
  7. SINGULAIR (MONTELUKAST/01362601) [Concomitant]
  8. BONIVA (IBANDRONATE SODIUM) [Concomitant]
  9. 00 [Concomitant]

REACTIONS (4)
  - ANGINA UNSTABLE [None]
  - ARTERIOSCLEROSIS [None]
  - ARTERIOSCLEROSIS CORONARY ARTERY [None]
  - CORONARY ARTERY STENOSIS [None]
